FAERS Safety Report 4485935-6 (Version None)
Quarter: 2004Q4

REPORT INFORMATION
  Report Type: 
  Country: None (occurrence: None)
  Receive Date: 20041021
  Receipt Date: 20041007
  Transmission Date: 20050328
  Serious: Yes (Other)
  Sender: FDA-Public Use
  Company Number: 2004075634

PATIENT
  Sex: Male

DRUGS (2)
  1. DILANTIN [Suspect]
     Indication: CONVULSION
     Dosage: (300 MG),
  2. CARBAMAZEPINE [Suspect]
     Indication: CONVULSION
     Dosage: (800 MG),

REACTIONS (5)
  - CONDITION AGGRAVATED [None]
  - CONVULSION [None]
  - DRUG INTOLERANCE [None]
  - HEADACHE [None]
  - MOOD SWINGS [None]
